FAERS Safety Report 22267178 (Version 1)
Quarter: 2023Q2

REPORT INFORMATION
  Report Type: Spontaneous
  Country: US (occurrence: US)
  Receive Date: 20230428
  Receipt Date: 20230428
  Transmission Date: 20230722
  Serious: No
  Sender: FDA-Public Use
  Company Number: US-TEVA-2023-US-2881784

PATIENT
  Age: 57 Year
  Sex: Female
  Weight: 49 kg

DRUGS (1)
  1. ESTRADIOL [Suspect]
     Active Substance: ESTRADIOL
     Indication: Product used for unknown indication
     Dosage: 0.5 MG, 1 MG, 2 MG
     Route: 048

REACTIONS (1)
  - Drug ineffective [Unknown]
